FAERS Safety Report 9226831 (Version 4)
Quarter: 2013Q2

REPORT INFORMATION
  Report Type: Report from Study
  Country: EG (occurrence: EG)
  Receive Date: 20130412
  Receipt Date: 20130426
  Transmission Date: 20140414
  Serious: Yes (Hospitalization)
  Sender: FDA-Public Use
  Company Number: EG-JNJFOC-20130402547

PATIENT
  Age: 26 Year
  Sex: Female
  Weight: 40 kg

DRUGS (12)
  1. HALDOL [Suspect]
     Indication: SCHIZOPHRENIA
     Route: 048
     Dates: start: 20101209, end: 20110718
  2. HALDOL [Suspect]
     Indication: SCHIZOPHRENIA
     Route: 048
     Dates: start: 20101105, end: 20101208
  3. HALDOL [Suspect]
     Indication: SCHIZOPHRENIA
     Route: 048
     Dates: start: 20101007, end: 20101104
  4. BIPERIDEN [Concomitant]
     Indication: OCULOGYRIC CRISIS
     Route: 048
     Dates: start: 20101028
  5. BIPERIDEN [Concomitant]
     Indication: EXTRAPYRAMIDAL DISORDER
     Route: 048
     Dates: start: 20101028
  6. BENZTROPINE [Concomitant]
     Indication: OCULOGYRIC CRISIS
     Route: 048
     Dates: start: 20110124
  7. BENZTROPINE [Concomitant]
     Indication: OCULOGYRIC CRISIS
     Route: 048
     Dates: start: 20101209
  8. BENZTROPINE [Concomitant]
     Indication: EXTRAPYRAMIDAL DISORDER
     Route: 048
     Dates: start: 20110124
  9. BENZTROPINE [Concomitant]
     Indication: EXTRAPYRAMIDAL DISORDER
     Route: 048
     Dates: start: 20101209
  10. TRAZODONE [Concomitant]
     Indication: INSOMNIA
     Route: 048
     Dates: start: 20101028
  11. AKINETON [Concomitant]
     Indication: OCULOGYRIC CRISIS
     Route: 048
     Dates: start: 20101226
  12. AKINETON [Concomitant]
     Indication: EXTRAPYRAMIDAL DISORDER
     Route: 048
     Dates: start: 20101226

REACTIONS (1)
  - Schizophrenia [Recovered/Resolved]
